FAERS Safety Report 21748571 (Version 1)
Quarter: 2022Q4

REPORT INFORMATION
  Report Type: Spontaneous
  Country: US (occurrence: None)
  Receive Date: 20221218
  Receipt Date: 20221218
  Transmission Date: 20230112
  Serious: Yes (Life-Threatening, Hospitalization, Disabling, Other)
  Sender: FDA-Public Use
  Company Number: None

PATIENT
  Age: 57 Year
  Sex: Female
  Weight: 69.3 kg

DRUGS (15)
  1. TALTZ [Suspect]
     Active Substance: IXEKIZUMAB
     Indication: Psoriatic arthropathy
     Dosage: OTHER QUANTITY : 1 INJECTION(S);?OTHER FREQUENCY : EVERY 28 DAYS FOR;?
     Route: 058
  2. CYMBALTA [Concomitant]
     Active Substance: DULOXETINE HYDROCHLORIDE
  3. FENTANYL [Concomitant]
     Active Substance: FENTANYL
  4. HYDROCODONE [Concomitant]
     Active Substance: HYDROCODONE
  5. OMEPRAZOLE [Concomitant]
     Active Substance: OMEPRAZOLE
  6. LASIX [Concomitant]
     Active Substance: FUROSEMIDE
  7. Aldacton [Concomitant]
  8. ZOFRAN [Concomitant]
     Active Substance: ONDANSETRON HYDROCHLORIDE
  9. Bladder Interested [Concomitant]
  10. Cane [Concomitant]
  11. Tub/shower chair [Concomitant]
  12. Rubber disc arthritis jar opener [Concomitant]
  13. IBUPROFEN [Concomitant]
     Active Substance: IBUPROFEN
  14. Chewable fruity Tums [Concomitant]
  15. LOPERAMIDE HYDROCHLORIDE [Concomitant]
     Active Substance: LOPERAMIDE HYDROCHLORIDE

REACTIONS (7)
  - Peripheral swelling [None]
  - Erythema [None]
  - Skin warm [None]
  - Arthralgia [None]
  - Gait disturbance [None]
  - Arthritis bacterial [None]
  - Therapy cessation [None]

NARRATIVE: CASE EVENT DATE: 20220826
